FAERS Safety Report 23167182 (Version 2)
Quarter: 2023Q4

REPORT INFORMATION
  Report Type: Spontaneous
  Country: IT (occurrence: IT)
  Receive Date: 20231109
  Receipt Date: 20231122
  Transmission Date: 20240110
  Serious: Yes (Other)
  Sender: FDA-Public Use
  Company Number: IT-TEVA-2023-IT-2942771

PATIENT
  Age: 54 Year
  Sex: Male

DRUGS (6)
  1. PREDNISONE [Suspect]
     Active Substance: PREDNISONE
     Indication: Immune thrombocytopenia
     Dosage: 50 MILLIGRAM DAILY;
     Route: 065
  2. PREDNISONE [Suspect]
     Active Substance: PREDNISONE
     Dosage: 50 MILLIGRAM DAILY; FOR 10 DAYS
     Route: 065
     Dates: start: 20220120
  3. PREDNISONE [Suspect]
     Active Substance: PREDNISONE
     Dosage: 37.5 MILLIGRAM DAILY; FOR 10 DAYS
     Route: 065
     Dates: start: 2022
  4. PREDNISONE [Suspect]
     Active Substance: PREDNISONE
     Dosage: 6.75 MILLIGRAM DAILY;
     Route: 065
     Dates: start: 2022
  5. ELTROMBOPAG [Suspect]
     Active Substance: ELTROMBOPAG
     Indication: Immune thrombocytopenia
     Dosage: 25 MILLIGRAM DAILY;
     Route: 065
  6. ELTROMBOPAG [Suspect]
     Active Substance: ELTROMBOPAG
     Dosage: 75 MILLIGRAM DAILY; RECEIVED FOR 6 CONTINUOUS YEARS
     Route: 065

REACTIONS (3)
  - Hypertension [Unknown]
  - Headache [Unknown]
  - Therapy non-responder [Unknown]
